FAERS Safety Report 10627513 (Version 1)
Quarter: 2014Q4

REPORT INFORMATION
  Report Type: Spontaneous
  Country: US (occurrence: US)
  Receive Date: 20141205
  Receipt Date: 20141205
  Transmission Date: 20150529
  Serious: Yes (Other)
  Sender: FDA-Public Use
  Company Number: US-AMGEN-USASP2014093618

PATIENT
  Age: 44 Year
  Sex: Female

DRUGS (1)
  1. ENBREL [Suspect]
     Active Substance: ETANERCEPT
     Indication: RHEUMATOID ARTHRITIS
     Dosage: 50 MG, QWK
     Route: 065
     Dates: start: 201408

REACTIONS (11)
  - Injection site inflammation [Not Recovered/Not Resolved]
  - Hypersensitivity [Recovered/Resolved]
  - Knee arthroplasty [Not Recovered/Not Resolved]
  - Paraesthesia [Not Recovered/Not Resolved]
  - Hypoaesthesia [Not Recovered/Not Resolved]
  - Sneezing [Recovered/Resolved]
  - Injection site reaction [Not Recovered/Not Resolved]
  - Lacrimation increased [Recovered/Resolved]
  - Sinusitis [Recovered/Resolved]
  - Injection site pain [Not Recovered/Not Resolved]
  - Injection site bruising [Not Recovered/Not Resolved]

NARRATIVE: CASE EVENT DATE: 201408
